FAERS Safety Report 8734234 (Version 2)
Quarter: 2012Q4

REPORT INFORMATION
  Report Type: 
  Country: TR (occurrence: TR)
  Receive Date: 20120821
  Receipt Date: 20121102
  Transmission Date: 20130627
  Serious: Yes (Death, Hospitalization)
  Sender: FDA-Public Use
  Company Number: TR-ALEXION PHARMACEUTICALS INC.-A201201509

PATIENT
  Age: 10 None
  Sex: Male

DRUGS (1)
  1. SOLIRIS 300MG [Suspect]
     Indication: HAEMOLYTIC URAEMIC SYNDROME
     Dosage: 600 mg, q2w
     Route: 042
     Dates: start: 201202

REACTIONS (3)
  - Cardiomyopathy [Fatal]
  - Cardiac failure [Fatal]
  - Acute pulmonary oedema [Unknown]
